FAERS Safety Report 26157913 (Version 1)
Quarter: 2025Q4

REPORT INFORMATION
  Report Type: Spontaneous
  Country: US (occurrence: None)
  Receive Date: 20251214
  Receipt Date: 20251214
  Transmission Date: 20260118
  Serious: Yes (Life-Threatening, Hospitalization, Disabling, Other)
  Sender: FDA-CTU
  Company Number: None

PATIENT
  Age: 76 Year
  Sex: Male
  Weight: 95.4 kg

DRUGS (1)
  1. KEYTRUDA [Suspect]
     Active Substance: PEMBROLIZUMAB
     Indication: Bladder cancer
     Dates: start: 20250818, end: 20250825

REACTIONS (4)
  - Urosepsis [None]
  - Diabetic ketoacidosis [None]
  - Acute kidney injury [None]
  - Bedridden [None]

NARRATIVE: CASE EVENT DATE: 20250826
